FAERS Safety Report 7498747-6 (Version None)
Quarter: 2011Q2

REPORT INFORMATION
  Report Type: 
  Country: None (occurrence: None)
  Receive Date: 20110516
  Receipt Date: 20110502
  Transmission Date: 20111010
  Serious: Yes (Other)
  Sender: FDA-Public Use
  Company Number: CIO10017386

PATIENT
  Age: 21 Year
  Sex: Female
  Weight: 63.5 kg

DRUGS (3)
  1. CREST 3D WHITE MULTI-CARE WHITENING ORAL RINSE, FRESH MINT FLAVOR(HYDR [Suspect]
     Indication: TOOTH DISCOLOURATION
     Dosage: 1 APPLIC, 2/DAY, INTRAORAL
  2. CREST 3D WHITE VIVID TOOTHPASTE, RADIANT MINT (SODIUM FLUORIDE 0.243%, [Suspect]
     Indication: TOOTH DISCOLOURATION
     Dosage: 1 APPLIC, 2/DAY, INTRAORAL
  3. PORTIA-28 (ETHUNYLESTRADIOL, LEVONORGESTREL) [Concomitant]

REACTIONS (14)
  - HYPERSENSITIVITY [None]
  - OEDEMA MOUTH [None]
  - LIP SWELLING [None]
  - LIP ULCERATION [None]
  - BLISTER [None]
  - ORAL PAIN [None]
  - ORAL DISORDER [None]
  - THROAT IRRITATION [None]
  - CHEILITIS [None]
  - DYSPHAGIA [None]
  - DYSPNOEA [None]
  - STOMATITIS [None]
  - ORAL DISCOMFORT [None]
  - PHARYNGEAL OEDEMA [None]
